FAERS Safety Report 25975444 (Version 2)
Quarter: 2025Q4

REPORT INFORMATION
  Report Type: Spontaneous
  Country: US (occurrence: US)
  Receive Date: 20251029
  Receipt Date: 20251204
  Transmission Date: 20260118
  Serious: Yes (Other)
  Sender: NOVO NORDISK
  Company Number: US-NOVOPROD-1546413

PATIENT
  Age: 59 Year
  Sex: Male
  Weight: 71.655 kg

DRUGS (2)
  1. OZEMPIC [Suspect]
     Active Substance: SEMAGLUTIDE
     Dosage: 0.5 MG
     Route: 058
     Dates: start: 20251014
  2. OZEMPIC [Suspect]
     Active Substance: SEMAGLUTIDE
     Indication: Type 2 diabetes mellitus
     Dosage: 1 MG, QW
     Route: 058
     Dates: end: 20251010

REACTIONS (1)
  - Tooth extraction [Recovered/Resolved]

NARRATIVE: CASE EVENT DATE: 20250101
